FAERS Safety Report 5787309-4 (Version None)
Quarter: 2008Q2

REPORT INFORMATION
  Report Type: 
  Country: None (occurrence: None)
  Receive Date: 20080625
  Receipt Date: 20071203
  Transmission Date: 20081010
  Serious: No
  Sender: FDA-Public Use
  Company Number: US-ASTRAZENECA-2007UW21219

PATIENT
  Age: 11 Year
  Sex: Male

DRUGS (3)
  1. PULMICORT FLEXHALER [Suspect]
     Route: 055
  2. PULMICORT FLEXHALER [Suspect]
     Route: 055
  3. PULMICORT [Concomitant]
     Route: 055

REACTIONS (1)
  - FOREIGN BODY TRAUMA [None]
